FAERS Safety Report 24460357 (Version 1)
Quarter: 2024Q4

REPORT INFORMATION
  Report Type: Report from Study
  Country: US (occurrence: US)
  Receive Date: 20241018
  Receipt Date: 20241018
  Transmission Date: 20250114
  Serious: No
  Sender: ROCHE
  Company Number: US-ROCHE-3557448

PATIENT
  Age: 57 Year
  Sex: Male
  Weight: 94.98 kg

DRUGS (7)
  1. RITUXAN [Suspect]
     Active Substance: RITUXIMAB
     Indication: Granulomatosis with polyangiitis
     Dosage: ONCE A WEEK FOR 4 WEEK
     Route: 065
  2. RITUXAN [Suspect]
     Active Substance: RITUXIMAB
     Route: 065
  3. SOLU-MEDROL [Concomitant]
     Active Substance: METHYLPREDNISOLONE SODIUM SUCCINATE
  4. NUCALA [Concomitant]
     Active Substance: MEPOLIZUMAB
  5. PREDNISONE [Concomitant]
     Active Substance: PREDNISONE
  6. AZELASTINE [Concomitant]
     Active Substance: AZELASTINE
  7. AZATHIOPRINE [Concomitant]
     Active Substance: AZATHIOPRINE

REACTIONS (11)
  - Arthralgia [Unknown]
  - Sinus congestion [Unknown]
  - Wheezing [Not Recovered/Not Resolved]
  - Diabetic complication [Unknown]
  - Viral infection [Unknown]
  - Polyarthritis [Recovering/Resolving]
  - Dyspnoea [Unknown]
  - Vasculitic rash [Unknown]
  - Haemoptysis [Unknown]
  - Eosinophilia [Not Recovered/Not Resolved]
  - Type 2 diabetes mellitus [Unknown]

NARRATIVE: CASE EVENT DATE: 20130601
